FAERS Safety Report 7688790-6 (Version None)
Quarter: 2011Q3

REPORT INFORMATION
  Report Type: 
  Country: None (occurrence: None)
  Receive Date: 20110817
  Receipt Date: 20110809
  Transmission Date: 20111222
  Serious: Yes (Hospitalization)
  Sender: FDA-Public Use
  Company Number: JP-B.I. PHARMACEUTICALS,INC./RIDGEFIELD-2011-BP-19491NB

PATIENT
  Age: 73 Year
  Sex: Male

DRUGS (3)
  1. ASPIRIN [Concomitant]
     Route: 048
  2. CYTOTEC [Suspect]
     Route: 048
     Dates: start: 20100602, end: 20110802
  3. MOBIC [Suspect]
     Route: 048
     Dates: start: 20100602, end: 20110802

REACTIONS (2)
  - METASTASES TO BONE [None]
  - GASTRIC ULCER [None]
